FAERS Safety Report 21897274 (Version 1)
Quarter: 2023Q1

REPORT INFORMATION
  Report Type: Spontaneous
  Country: FR (occurrence: None)
  Receive Date: 20230123
  Receipt Date: 20230123
  Transmission Date: 20230418
  Serious: Yes (Hospitalization)
  Sender: FDA-Public Use
  Company Number: FR-Orion Corporation ORION PHARMA-ENTC2013-0273

PATIENT
  Sex: Female

DRUGS (16)
  1. STALEVO [Suspect]
     Active Substance: CARBIDOPA\ENTACAPONE\LEVODOPA
     Indication: Parkinson^s disease
     Route: 048
     Dates: end: 201303
  2. STALEVO [Suspect]
     Active Substance: CARBIDOPA\ENTACAPONE\LEVODOPA
     Dosage: REINTRODUCED
     Route: 065
     Dates: start: 201306
  3. STALEVO [Suspect]
     Active Substance: CARBIDOPA\ENTACAPONE\LEVODOPA
     Dosage: DOSE INCREASED
     Route: 065
     Dates: start: 20130719, end: 20130720
  4. STALEVO [Suspect]
     Active Substance: CARBIDOPA\ENTACAPONE\LEVODOPA
     Dosage: REINTRODUCED
     Route: 065
     Dates: start: 20130721, end: 20130724
  5. PRAMIPEXOLE [Suspect]
     Active Substance: PRAMIPEXOLE
     Indication: Parkinson^s disease
     Route: 048
     Dates: end: 201303
  6. PRAMIPEXOLE [Suspect]
     Active Substance: PRAMIPEXOLE
     Dosage: REINTRODUCED
     Route: 065
     Dates: start: 201306
  7. PRAMIPEXOLE [Suspect]
     Active Substance: PRAMIPEXOLE
     Dosage: DOSE INCREASED
     Route: 065
     Dates: start: 20130719, end: 20130720
  8. PRAMIPEXOLE [Suspect]
     Active Substance: PRAMIPEXOLE
     Dosage: REINTRODUCED
     Route: 065
     Dates: start: 20130721, end: 20130724
  9. BENSERAZIDE HYDROCHLORIDE\LEVODOPA [Suspect]
     Active Substance: BENSERAZIDE HYDROCHLORIDE\LEVODOPA
     Indication: Parkinson^s disease
     Route: 048
     Dates: end: 201303
  10. BENSERAZIDE HYDROCHLORIDE\LEVODOPA [Suspect]
     Active Substance: BENSERAZIDE HYDROCHLORIDE\LEVODOPA
     Dosage: REINTRODUCED
     Route: 065
     Dates: start: 201306
  11. BENSERAZIDE HYDROCHLORIDE\LEVODOPA [Suspect]
     Active Substance: BENSERAZIDE HYDROCHLORIDE\LEVODOPA
     Dosage: DOSE INCREASED
     Route: 065
     Dates: start: 20130719, end: 20130720
  12. BENSERAZIDE HYDROCHLORIDE\LEVODOPA [Suspect]
     Active Substance: BENSERAZIDE HYDROCHLORIDE\LEVODOPA
     Dosage: REINTRODUCED
     Route: 065
     Dates: start: 20130721, end: 20130724
  13. APOMORPHINE [Suspect]
     Active Substance: APOMORPHINE
     Route: 065
     Dates: start: 201303
  14. APOMORPHINE [Suspect]
     Active Substance: APOMORPHINE
     Dosage: DOSE INCREASED
     Route: 065
     Dates: start: 201306
  15. APOMORPHINE [Suspect]
     Active Substance: APOMORPHINE
     Route: 065
     Dates: start: 20130724
  16. METFORMIN\SITAGLIPTIN [Concomitant]
     Active Substance: METFORMIN\SITAGLIPTIN
     Indication: Diabetes mellitus
     Route: 048

REACTIONS (4)
  - Muscle spasms [Not Recovered/Not Resolved]
  - Intestinal obstruction [Unknown]
  - Weight decreased [Not Recovered/Not Resolved]
  - Drug withdrawal syndrome [Unknown]

NARRATIVE: CASE EVENT DATE: 20130301
